FAERS Safety Report 19424724 (Version 1)
Quarter: 2021Q2

REPORT INFORMATION
  Report Type: Report from Study
  Country: None (occurrence: GB)
  Receive Date: 20210617
  Receipt Date: 20210617
  Transmission Date: 20210717
  Serious: Yes (Other)
  Sender: FDA-Public Use
  Company Number: GB-ABBVIE-21K-167-3952356-00

PATIENT
  Age: 64 Year
  Sex: Male

DRUGS (4)
  1. EMTRIVA [Suspect]
     Active Substance: EMTRICITABINE
     Indication: HIV INFECTION
     Dosage: UNK
     Route: 065
     Dates: start: 20101001
  2. NORVIR [Suspect]
     Active Substance: RITONAVIR
     Indication: HIV INFECTION
     Dosage: UNK
     Route: 048
     Dates: start: 20101001
  3. MARAVIROC [Suspect]
     Active Substance: MARAVIROC
     Indication: HIV INFECTION
     Dosage: UNK
     Route: 065
     Dates: start: 20101001
  4. PREZISTA [Suspect]
     Active Substance: DARUNAVIR ETHANOLATE
     Indication: HIV INFECTION
     Dosage: UNK
     Route: 065
     Dates: start: 20101001

REACTIONS (2)
  - Pathogen resistance [Unknown]
  - Viral mutation identified [Unknown]

NARRATIVE: CASE EVENT DATE: 20101001
